FAERS Safety Report 9790537 (Version 2)
Quarter: 2014Q1

REPORT INFORMATION
  Report Type: Spontaneous
  Country: NL (occurrence: NL)
  Receive Date: 20131231
  Receipt Date: 20140113
  Transmission Date: 20141002
  Serious: Yes (Other)
  Sender: FDA-Public Use
  Company Number: NL-PFIZER INC-2013371101

PATIENT
  Age: 60 Year
  Sex: Male
  Weight: 83 kg

DRUGS (3)
  1. NEURONTIN [Suspect]
     Indication: NEURALGIA
     Dosage: DIFFERENT DOSAGES
     Dates: start: 20070501
  2. LYRICA [Suspect]
     Indication: NEURALGIA
     Dosage: DIFFERENT DOSAGES
     Dates: start: 20070501
  3. AMITRIPTYLINE [Concomitant]
     Dosage: 25 MG, 3X/DAY
     Dates: start: 20080801

REACTIONS (1)
  - Lupus-like syndrome [Not Recovered/Not Resolved]
